FAERS Safety Report 9309017 (Version 4)
Quarter: 2013Q2

REPORT INFORMATION
  Report Type: Spontaneous
  Country: US (occurrence: US)
  Receive Date: 20130524
  Receipt Date: 20130627
  Transmission Date: 20140414
  Serious: Yes (Death, Hospitalization, Other)
  Sender: FDA-Public Use
  Company Number: US-BAXTER-2013BAX018238

PATIENT
  Age: 75 Year
  Sex: Female

DRUGS (1)
  1. DIANEAL LOW CALCIUM [Suspect]
     Indication: PERITONEAL DIALYSIS
     Route: 033
     Dates: end: 20130524

REACTIONS (7)
  - Therapy cessation [Fatal]
  - Haemorrhage [Fatal]
  - Sepsis [Recovering/Resolving]
  - Splenic infarction [Recovering/Resolving]
  - Gastrointestinal haemorrhage [Unknown]
  - Diverticulitis [Not Recovered/Not Resolved]
  - Peritonitis [Not Recovered/Not Resolved]
